FAERS Safety Report 17227529 (Version 1)
Quarter: 2020Q1

REPORT INFORMATION
  Report Type: Spontaneous
  Country: GB (occurrence: GB)
  Receive Date: 20200103
  Receipt Date: 20200103
  Transmission Date: 20200409
  Serious: Yes (Life-Threatening)
  Sender: FDA-Public Use
  Company Number: GB-TEVA-2019-GB-1160570

PATIENT
  Age: 15 Year
  Sex: Female
  Weight: 30 kg

DRUGS (2)
  1. PHENOXYMETHYLPENICILLIN [Suspect]
     Active Substance: PENICILLIN V
     Dosage: 125MG/5ML
     Dates: start: 20191129
  2. CLARITHROMYCIN. [Concomitant]
     Active Substance: CLARITHROMYCIN
     Dosage: FOR 7 DAYS (2 DOSAGE FORMS PER DAY)
     Dates: start: 20191129

REACTIONS (3)
  - Dysphagia [Unknown]
  - Mouth swelling [Unknown]
  - Swollen tongue [Unknown]

NARRATIVE: CASE EVENT DATE: 20191129
